FAERS Safety Report 9477055 (Version 2)
Quarter: 2013Q3

REPORT INFORMATION
  Report Type: Other
  Country: DE (occurrence: DE)
  Receive Date: 20130826
  Receipt Date: 20130903
  Transmission Date: 20140515
  Serious: Yes (Life-Threatening, Hospitalization)
  Sender: FDA-Public Use
  Company Number: DE-NAPPMUNDI-DEU-2013-0012166

PATIENT
  Age: 20 Year
  Sex: Female
  Weight: 102 kg

DRUGS (1)
  1. THEOPHYLLINE [Suspect]
     Indication: ABORTION INDUCED
     Dosage: 20 G, SINGLE
     Route: 048

REACTIONS (8)
  - Intentional overdose [Recovered/Resolved]
  - Nausea [Recovered/Resolved]
  - Vomiting [Recovered/Resolved]
  - Dizziness [Recovered/Resolved]
  - Supraventricular tachycardia [Recovered/Resolved]
  - Blood pressure decreased [Recovered/Resolved]
  - Induced abortion failed [Unknown]
  - Exposure during pregnancy [Unknown]
